FAERS Safety Report 7379034-3 (Version None)
Quarter: 2011Q1

REPORT INFORMATION
  Report Type: 
  Country: None (occurrence: None)
  Receive Date: 20110328
  Receipt Date: 20110317
  Transmission Date: 20110831
  Serious: Yes (Other)
  Sender: FDA-Public Use
  Company Number: US-BAXTER-2011BH007130

PATIENT
  Sex: Female

DRUGS (9)
  1. CARBOPLATIN [Suspect]
     Indication: CERVIX CARCINOMA STAGE IV
     Route: 065
  2. DEXAMETHASONE [Concomitant]
     Indication: PREMEDICATION
     Route: 048
  3. ANTIEMETICS AND ANTINAUSEANTS [Concomitant]
     Indication: PROPHYLAXIS OF NAUSEA AND VOMITING
     Route: 042
  4. DIPHENHYDRAMINE HCL [Concomitant]
     Indication: PREMEDICATION
     Route: 042
  5. CIMETIDINE [Concomitant]
     Indication: PREMEDICATION
     Route: 042
  6. MESNA [Suspect]
     Indication: CERVIX CARCINOMA
     Route: 042
  7. MESNA [Suspect]
     Route: 048
  8. PACLITAXEL [Suspect]
     Indication: CERVIX CARCINOMA
     Route: 065
  9. IFOSFAMIDE [Suspect]
     Indication: CERVIX CARCINOMA
     Route: 065

REACTIONS (1)
  - HAEMORRHAGE [None]
